FAERS Safety Report 4775862-9 (Version None)
Quarter: 2005Q3

REPORT INFORMATION
  Report Type: 
  Country: None (occurrence: None)
  Receive Date: 20050914
  Receipt Date: 20050324
  Transmission Date: 20060218
  Serious: Yes (Hospitalization)
  Sender: FDA-Public Use
  Company Number: 163-20785-05030671

PATIENT
  Age: 61 Year
  Sex: Female

DRUGS (4)
  1. THALOMID [Suspect]
     Indication: BRAIN NEOPLASM MALIGNANT
     Dosage: 100 MG, QD, ORAL
     Route: 048
     Dates: start: 20041217
  2. HYDREA [Concomitant]
  3. GLEEVAC (IMATINIB MESILATE) [Concomitant]
  4. DECADRON [Concomitant]

REACTIONS (2)
  - CONSTIPATION [None]
  - HYPOAESTHESIA [None]
